FAERS Safety Report 9312617 (Version 1)
Quarter: 2013Q2

REPORT INFORMATION
  Report Type: Spontaneous
  Country: DE (occurrence: DE)
  Receive Date: 20130528
  Receipt Date: 20130528
  Transmission Date: 20140414
  Serious: Yes (Other)
  Sender: FDA-Public Use
  Company Number: DE-TEVA-407805ISR

PATIENT
  Sex: Female
  Weight: 70 kg

DRUGS (1)
  1. TAXOMEDAC [Suspect]
     Dosage: 146 MILLIGRAM DAILY;

REACTIONS (3)
  - Paraesthesia [Recovered/Resolved]
  - Polyneuropathy [Recovered/Resolved]
  - Hypoaesthesia [Recovered/Resolved]
